FAERS Safety Report 7534810-9 (Version None)
Quarter: 2011Q2

REPORT INFORMATION
  Report Type: 
  Country: None (occurrence: None)
  Receive Date: 20110609
  Receipt Date: 20080917
  Transmission Date: 20111010
  Serious: Yes (Hospitalization)
  Sender: FDA-Public Use
  Company Number: PHHY2008HU14825

PATIENT
  Age: 79 Year
  Sex: Female

DRUGS (6)
  1. ALPRAZOLAM [Concomitant]
  2. AMLODIPINE [Concomitant]
     Indication: HYPERTENSION
  3. DIOVAN HCT [Suspect]
     Indication: HYPERTENSION
     Dosage: 160/25 MG DAILY
     Route: 048
  4. BISOPROLOL FUMARATE [Concomitant]
  5. NITROFURANTOIN [Concomitant]
  6. CLOPAMIDE [Concomitant]

REACTIONS (4)
  - BRONCHITIS [None]
  - LOWER RESPIRATORY TRACT INFLAMMATION [None]
  - CARDIAC FAILURE [None]
  - RESPIRATORY TRACT INFECTION [None]
